FAERS Safety Report 8442788-9 (Version None)
Quarter: 2012Q2

REPORT INFORMATION
  Report Type: 
  Country: None (occurrence: None)
  Receive Date: 20120615
  Receipt Date: 20120503
  Transmission Date: 20120825
  Serious: Yes (Hospitalization)
  Sender: FDA-Public Use
  Company Number: SI-MYLANLABS-2012S1007197

PATIENT
  Age: 76 Year
  Sex: Female

DRUGS (18)
  1. ZOLPIDEM TARTRATE [Suspect]
     Indication: DEMENTIA ALZHEIMER'S TYPE
     Route: 048
  2. FLUOXETINE [Suspect]
     Indication: DEMENTIA ALZHEIMER'S TYPE
     Route: 048
  3. EXELON [Suspect]
     Indication: DEPRESSION
     Route: 048
  4. RISPERIDONE [Suspect]
     Indication: DEMENTIA ALZHEIMER'S TYPE
     Route: 048
  5. RISPERIDONE [Suspect]
     Indication: DEPRESSION
     Route: 048
  6. BUPRENORPHINE [Concomitant]
     Indication: PRODUCT USED FOR UNKNOWN INDICATION
  7. ZOLPIDEM TARTRATE [Suspect]
     Indication: DEPRESSION
     Route: 048
  8. NEURONTIN [Suspect]
     Indication: DEMENTIA ALZHEIMER'S TYPE
     Route: 048
     Dates: end: 20120206
  9. VALSACOR [Concomitant]
     Indication: PRODUCT USED FOR UNKNOWN INDICATION
  10. LORAZEPAM [Suspect]
     Indication: DEPRESSION
     Route: 048
  11. LANTREA [Concomitant]
     Indication: PRODUCT USED FOR UNKNOWN INDICATION
  12. FLUOXETINE [Suspect]
     Indication: DEPRESSION
     Route: 048
  13. LORAZEPAM [Suspect]
     Indication: DEMENTIA ALZHEIMER'S TYPE
     Route: 048
  14. NEURONTIN [Suspect]
     Indication: DEPRESSION
     Route: 048
     Dates: end: 20120206
  15. PROMAZINE HYDROCHLORIDE [Suspect]
     Indication: DEPRESSION
     Route: 048
  16. PROMAZINE HYDROCHLORIDE [Suspect]
     Indication: DEMENTIA ALZHEIMER'S TYPE
     Route: 048
  17. EXELON [Suspect]
     Indication: DEMENTIA ALZHEIMER'S TYPE
     Route: 048
  18. BERODUAL [Concomitant]
     Indication: PRODUCT USED FOR UNKNOWN INDICATION

REACTIONS (2)
  - SOMNOLENCE [None]
  - PNEUMONIA ASPIRATION [None]
